FAERS Safety Report 7763094-1 (Version None)
Quarter: 2011Q3

REPORT INFORMATION
  Report Type: 
  Country: None (occurrence: None)
  Receive Date: 20110920
  Receipt Date: 20110330
  Transmission Date: 20111222
  Serious: No
  Sender: FDA-Public Use
  Company Number: US-BAUSCH-2011BL002085

PATIENT
  Age: 64 Year
  Sex: Male

DRUGS (8)
  1. ERYTHROCIN 1% [Suspect]
     Indication: EYE DISCHARGE
     Route: 047
     Dates: start: 20110207, end: 20110214
  2. ASPIRIN [Concomitant]
     Indication: PROPHYLAXIS
     Route: 048
  3. CITALOPRAM HYDROBROMIDE [Concomitant]
     Indication: ANXIETY
     Route: 048
  4. VITAMIN D [Concomitant]
     Indication: VITAMIN SUPPLEMENTATION
     Route: 048
  5. LISINOPRIL [Concomitant]
     Indication: HYPERTENSION
     Route: 048
  6. SOOTHE XTRA HYDRATION [Concomitant]
     Indication: DRY EYE
     Route: 047
  7. ERYTHROCIN 1% [Suspect]
     Indication: DRY EYE
     Route: 047
     Dates: start: 20110207, end: 20110214
  8. ERYTHROCIN 1% [Suspect]
     Indication: EYE IRRITATION
     Route: 047
     Dates: start: 20110207, end: 20110214

REACTIONS (1)
  - DRUG INEFFECTIVE [None]
